FAERS Safety Report 24134963 (Version 2)
Quarter: 2025Q1

REPORT INFORMATION
  Report Type: Report from Study
  Country: CA (occurrence: CA)
  Receive Date: 20240725
  Receipt Date: 20250319
  Transmission Date: 20250409
  Serious: Yes (Other)
  Sender: BIOCRYST PHARMACEUTICALS
  Company Number: CA-BIOCRYST PHARMACEUTICALS, INC.-2024BCR00759

PATIENT

DRUGS (12)
  1. ORLADEYO [Suspect]
     Active Substance: BEROTRALSTAT HYDROCHLORIDE
     Indication: Hereditary angioedema
     Dosage: 150 MG, QD
     Route: 048
     Dates: start: 20240711
  2. ELAVIL [Concomitant]
     Active Substance: AMITRIPTYLINE HYDROCHLORIDE
  3. PROPRANOLOL [Concomitant]
     Active Substance: PROPRANOLOL HYDROCHLORIDE
  4. ALLOPURINOL [Concomitant]
     Active Substance: ALLOPURINOL
  5. HYDROMORPHONE [Concomitant]
     Active Substance: HYDROMORPHONE
  6. LORAZEPAM [Concomitant]
     Active Substance: LORAZEPAM
  7. ONDANSETRON [Concomitant]
     Active Substance: ONDANSETRON
  8. PANTOPRAZOLE SODIUM [Concomitant]
     Active Substance: PANTOPRAZOLE SODIUM
  9. VENTOLIN [Concomitant]
     Active Substance: ALBUTEROL SULFATE
  10. ADVAIR HFA [Concomitant]
     Active Substance: FLUTICASONE PROPIONATE\SALMETEROL XINAFOATE
  11. BERINERT [Concomitant]
     Active Substance: HUMAN C1-ESTERASE INHIBITOR
  12. EPIPEN [Concomitant]
     Active Substance: EPINEPHRINE

REACTIONS (1)
  - Generalised tonic-clonic seizure [Not Recovered/Not Resolved]

NARRATIVE: CASE EVENT DATE: 20240711
